FAERS Safety Report 19191951 (Version 1)
Quarter: 2021Q2

REPORT INFORMATION
  Report Type: Spontaneous
  Country: NL (occurrence: NL)
  Receive Date: 20210428
  Receipt Date: 20210428
  Transmission Date: 20210717
  Serious: Yes (Hospitalization, Disabling, Other)
  Sender: FDA-Public Use
  Company Number: NL-ACS-002001

PATIENT
  Sex: Male
  Weight: 1.12 kg

DRUGS (6)
  1. DOPAMINE [Suspect]
     Active Substance: DOPAMINE HYDROCHLORIDE
     Indication: NEONATAL RESPIRATORY FAILURE
     Dosage: ADMINISTERED VIA UMBILICAL LINE FOR 72 HOURS AND PIV LINE IN THE MIDDLE AXILLARY AREA
     Route: 042
  2. CAFFEINE. [Suspect]
     Active Substance: CAFFEINE
     Indication: NEONATAL RESPIRATORY FAILURE
     Dosage: ADMINISTERED VIA UMBILICAL LINE FOR 72 HOURS AND PIV LINE IN THE MIDDLE AXILLARY AREA
     Route: 042
  3. GENTAMICIN. [Suspect]
     Active Substance: GENTAMICIN
     Indication: NEONATAL RESPIRATORY FAILURE
     Dosage: ADMINISTERED VIA UMBILICAL LINE FOR 72 HOURS AND PIV LINE IN THE MIDDLE AXILLARY AREA
     Route: 042
  4. CEFTRIAXONE. [Suspect]
     Active Substance: CEFTRIAXONE
     Indication: NEONATAL RESPIRATORY FAILURE
     Dosage: ADMINISTERED VIA UMBILICAL LINE FOR 72 HOURS AND PIV LINE IN THE MIDDLE AXILLARY AREA
     Route: 042
  5. AMPICILLIN [Suspect]
     Active Substance: AMPICILLIN
     Indication: NEONATAL RESPIRATORY FAILURE
     Dosage: ADMINISTERED VIA UMBILICAL LINE FOR 72 HOURS AND PIV LINE IN THE MIDDLE AXILLARY AREA
     Route: 042
  6. FENTANYL. [Suspect]
     Active Substance: FENTANYL
     Indication: NEONATAL RESPIRATORY FAILURE
     Dosage: ADMINISTERED VIA UMBILICAL LINE FOR 72 HOURS AND PIV LINE IN THE MIDDLE AXILLARY AREA
     Route: 042

REACTIONS (4)
  - Medication error [Recovered/Resolved with Sequelae]
  - Arterial thrombosis [Recovered/Resolved with Sequelae]
  - Dry gangrene [Recovered/Resolved with Sequelae]
  - Infusion site extravasation [Recovered/Resolved with Sequelae]
